FAERS Safety Report 18319342 (Version 1)
Quarter: 2020Q3

REPORT INFORMATION
  Report Type: Spontaneous
  Country: US (occurrence: US)
  Receive Date: 20200928
  Receipt Date: 20200928
  Transmission Date: 20201103
  Serious: Yes (Other)
  Sender: FDA-Public Use
  Company Number: NVSC2020US257968

PATIENT
  Age: 36 Year
  Sex: Female

DRUGS (1)
  1. TRILEPTAL [Suspect]
     Active Substance: OXCARBAZEPINE
     Indication: PRODUCT USED FOR UNKNOWN INDICATION
     Dosage: 300 MG, QD
     Route: 048

REACTIONS (12)
  - Balance disorder [Unknown]
  - Somnolence [Unknown]
  - Fatigue [Unknown]
  - Visual impairment [Unknown]
  - Therapeutic product effect incomplete [Unknown]
  - Partial seizures [Unknown]
  - Headache [Unknown]
  - Asthenia [Unknown]
  - Cognitive disorder [Unknown]
  - Anxiety [Unknown]
  - Nervousness [Unknown]
  - Partial seizures with secondary generalisation [Unknown]
